FAERS Safety Report 4862613-2 (Version None)
Quarter: 2005Q4

REPORT INFORMATION
  Report Type: 
  Country: None (occurrence: None)
  Receive Date: 20051221
  Receipt Date: 20000630
  Transmission Date: 20060501
  Serious: Yes (Hospitalization)
  Sender: FDA-Public Use
  Company Number: US-ROCHE-240312

PATIENT
  Age: 64 Year
  Sex: Male

DRUGS (17)
  1. DACLIZUMAB [Suspect]
     Route: 042
     Dates: start: 20000114, end: 20000303
  2. MYCOPHENOLATE MOFETIL [Suspect]
     Route: 065
     Dates: start: 20000114
  3. CYCLOSPORINE [Suspect]
     Route: 065
     Dates: start: 20000116
  4. PREDNISONE TAB [Suspect]
     Route: 065
     Dates: start: 20000114
  5. BACTRIM [Concomitant]
     Dates: start: 20000115
  6. LASIX [Concomitant]
     Dates: start: 20000115
  7. MAGNESIUM [Concomitant]
     Dates: start: 20000115
  8. ZOCOR [Concomitant]
     Dates: start: 20000128
  9. ISMO [Concomitant]
     Dates: start: 20000115
  10. CELEXA [Concomitant]
     Dates: start: 20000115
  11. PREVACID [Concomitant]
     Dates: start: 20000115
  12. ATACAND [Concomitant]
     Dates: start: 20000415
  13. NEURONTIN [Concomitant]
     Dates: start: 20000315
  14. POTASSIUM CHLORIDE [Concomitant]
     Dates: start: 20000115
  15. METOPROLOL [Concomitant]
     Dates: start: 20000715
  16. AVANDIA [Concomitant]
     Dates: start: 20000715
  17. AVAPRO [Concomitant]
     Dates: start: 20000815

REACTIONS (4)
  - BASAL CELL CARCINOMA [None]
  - CONDITION AGGRAVATED [None]
  - HYPERGLYCAEMIA [None]
  - HYPERTENSION [None]
